FAERS Safety Report 5393515-3 (Version None)
Quarter: 2007Q3

REPORT INFORMATION
  Report Type: 
  Country: None (occurrence: None)
  Receive Date: 20070723
  Receipt Date: 20060724
  Transmission Date: 20080115
  Serious: No
  Sender: FDA-Public Use
  Company Number: A0613342A

PATIENT
  Age: 55 Year
  Sex: Female

DRUGS (1)
  1. AVANDIA [Suspect]
     Dosage: 2MG PER DAY
     Route: 048

REACTIONS (1)
  - DRUG INEFFECTIVE [None]
